FAERS Safety Report 13079588 (Version 1)
Quarter: 2017Q1

REPORT INFORMATION
  Report Type: Spontaneous
  Country: SE (occurrence: SE)
  Receive Date: 20170103
  Receipt Date: 20170103
  Transmission Date: 20170428
  Serious: Yes (Other)
  Sender: FDA-Public Use
  Company Number: SE-SHIRE-SE201619850

PATIENT
  Age: 25 Year
  Sex: Male

DRUGS (2)
  1. ELVANSE [Suspect]
     Active Substance: LISDEXAMFETAMINE DIMESYLATE
     Indication: ATTENTION DEFICIT/HYPERACTIVITY DISORDER
     Dosage: 50 MG, 1X/DAY:QD
     Route: 048
     Dates: start: 2016, end: 201612
  2. ELVANSE [Suspect]
     Active Substance: LISDEXAMFETAMINE DIMESYLATE
     Dosage: 30 MG + 20 MG, OTHER (DURING THE DAY)
     Dates: start: 201612

REACTIONS (3)
  - Tachycardia [Recovered/Resolved with Sequelae]
  - Inappropriate schedule of drug administration [Not Recovered/Not Resolved]
  - Peripheral coldness [Recovered/Resolved with Sequelae]

NARRATIVE: CASE EVENT DATE: 20161024
